FAERS Safety Report 4422681-9 (Version None)
Quarter: 2004Q3

REPORT INFORMATION
  Report Type: 
  Country: None (occurrence: None)
  Receive Date: 20040713
  Receipt Date: 20030711
  Transmission Date: 20050211
  Serious: No
  Sender: FDA-Public Use
  Company Number: PHEH2003US06056

PATIENT
  Age: 74 Year
  Sex: Female
  Weight: 71.7 kg

DRUGS (7)
  1. ELIDEL [Suspect]
     Indication: ORAL LICHEN PLANUS
     Dosage: BID, TOPICAL
     Route: 061
     Dates: start: 20030214, end: 20030617
  2. DETROL [Concomitant]
  3. PREMARIN [Concomitant]
  4. SYNTHROID [Concomitant]
  5. FOLIC ACID [Concomitant]
  6. CALCIUM [Concomitant]
  7. MULTIVITAMIN [Concomitant]

REACTIONS (1)
  - AGEUSIA [None]
